FAERS Safety Report 22116538 (Version 1)
Quarter: 2023Q1

REPORT INFORMATION
  Report Type: Spontaneous
  Country: US (occurrence: None)
  Receive Date: 20230320
  Receipt Date: 20230320
  Transmission Date: 20230417
  Serious: Yes (Other)
  Sender: FDA-Public Use
  Company Number: None

PATIENT
  Age: 48 Year
  Sex: Female
  Weight: 59.85 kg

DRUGS (3)
  1. KENALOG-40 [Suspect]
     Active Substance: TRIAMCINOLONE ACETONIDE
     Indication: Arthralgia
     Dates: start: 20230308
  2. CLARITIN [Concomitant]
     Active Substance: LORATADINE
  3. PEPCID AC [Concomitant]
     Active Substance: FAMOTIDINE

REACTIONS (22)
  - Flushing [None]
  - Flushing [None]
  - Skin warm [None]
  - Headache [None]
  - Ocular discomfort [None]
  - Facial paresis [None]
  - Hypoaesthesia [None]
  - Tremor [None]
  - Anxiety [None]
  - Pruritus [None]
  - Blood glucose increased [None]
  - Limb discomfort [None]
  - Muscle spasms [None]
  - Ear discomfort [None]
  - Fatigue [None]
  - Paranasal sinus inflammation [None]
  - Gingival swelling [None]
  - Nausea [None]
  - Vision blurred [None]
  - Visual impairment [None]
  - Heart rate increased [None]
  - Blood pressure increased [None]

NARRATIVE: CASE EVENT DATE: 20230310
